FAERS Safety Report 10793160 (Version 1)
Quarter: 2015Q1

REPORT INFORMATION
  Report Type: Spontaneous
  Country: IT (occurrence: IT)
  Receive Date: 20150213
  Receipt Date: 20150213
  Transmission Date: 20150721
  Serious: Yes (Other)
  Sender: FDA-Public Use
  Company Number: IT-WATSON-2015-01842

PATIENT
  Age: 79 Year
  Sex: Male

DRUGS (2)
  1. ENALAPRIL [Suspect]
     Active Substance: ENALAPRIL
     Indication: HYPERTENSION
     Dosage: 1 DF, DAILY
     Route: 048
     Dates: start: 20140109, end: 20140112
  2. ATENOLOL (UNKNOWN) [Suspect]
     Active Substance: ATENOLOL
     Indication: HYPERTENSION
     Dosage: 1 DF, DAILY
     Route: 048
     Dates: start: 20140109, end: 20140112

REACTIONS (3)
  - Hypertension [Recovered/Resolved]
  - Drug ineffective [Recovered/Resolved]
  - Headache [Recovered/Resolved]

NARRATIVE: CASE EVENT DATE: 20140111
